FAERS Safety Report 4899216-X (Version None)
Quarter: 2006Q1

REPORT INFORMATION
  Report Type: 
  Country: None (occurrence: None)
  Receive Date: 20060131
  Receipt Date: 20060110
  Transmission Date: 20060701
  Serious: Yes (Hospitalization)
  Sender: FDA-Public Use
  Company Number: BSTA2006-0002

PATIENT
  Age: 71 Year
  Sex: Female

DRUGS (3)
  1. STALEVO 100 [Suspect]
     Indication: PARKINSON'S DISEASE
     Dosage: ORAL
     Route: 048
     Dates: start: 20051222, end: 20051230
  2. CITALOPRAM HYDROBROMIDE [Concomitant]
  3. TROMBYL [Concomitant]

REACTIONS (2)
  - FALL [None]
  - FEMUR FRACTURE [None]
